FAERS Safety Report 12700991 (Version 1)
Quarter: 2016Q3

REPORT INFORMATION
  Report Type: Spontaneous
  Country: US (occurrence: None)
  Receive Date: 20160830
  Receipt Date: 20160830
  Transmission Date: 20161109
  Serious: Yes (Disabling)
  Sender: FDA-Public Use
  Company Number: None

PATIENT
  Age: 59 Year
  Sex: Female
  Weight: 58.97 kg

DRUGS (5)
  1. KIRKLAND SIGNATURE ALLER TEC ALLERGY [Concomitant]
     Active Substance: CETIRIZINE HYDROCHLORIDE
  2. TOPIRAMATE, 50 MG [Suspect]
     Active Substance: TOPIRAMATE
     Indication: PARTIAL SEIZURES
     Route: 048
     Dates: start: 20141011, end: 20160828
  3. LOSARTAN. [Concomitant]
     Active Substance: LOSARTAN
  4. VITAMIN D3 [Concomitant]
     Active Substance: CHOLECALCIFEROL
  5. ESCITALOPRAM [Concomitant]
     Active Substance: ESCITALOPRAM OXALATE

REACTIONS (12)
  - Weight decreased [None]
  - Photophobia [None]
  - Nausea [None]
  - Throat irritation [None]
  - Diplopia [None]
  - Muscular weakness [None]
  - Toxicity to various agents [None]
  - Decreased appetite [None]
  - Eyelid ptosis [None]
  - Dizziness [None]
  - Fatigue [None]
  - Depressed level of consciousness [None]
